FAERS Safety Report 7507598-5 (Version None)
Quarter: 2011Q2

REPORT INFORMATION
  Report Type: 
  Country: None (occurrence: None)
  Receive Date: 20110526
  Receipt Date: 20110517
  Transmission Date: 20111010
  Serious: Yes (Hospitalization, Other)
  Sender: FDA-Public Use
  Company Number: US-AMGEN-USASP2011025693

PATIENT
  Age: 55 Year
  Sex: Male

DRUGS (1)
  1. ENBREL [Suspect]
     Indication: ANKYLOSING SPONDYLITIS
     Dosage: 50 MG, QMO
     Dates: end: 20110422

REACTIONS (8)
  - ASTHENIA [None]
  - CARDIAC FAILURE [None]
  - SPINAL CORD INFECTION [None]
  - OSTEOARTHRITIS [None]
  - MULTI-ORGAN FAILURE [None]
  - STAPHYLOCOCCAL SEPSIS [None]
  - ABDOMINAL PAIN [None]
  - MYOCARDIAL INFARCTION [None]
